FAERS Safety Report 8622877-6 (Version None)
Quarter: 2012Q3

REPORT INFORMATION
  Report Type: 
  Country: None (occurrence: None)
  Receive Date: 20120827
  Receipt Date: 20120820
  Transmission Date: 20120928
  Serious: Yes (Hospitalization)
  Sender: FDA-Public Use
  Company Number: PHHY2012FR072907

PATIENT
  Sex: Male

DRUGS (17)
  1. STALEVO 100 [Suspect]
     Dosage: 75 MG, UNK
     Dates: start: 20120406
  2. ORBENIN CAP [Concomitant]
     Dosage: 3 DF, DAILY
  3. MODOPAR [Suspect]
     Dosage: 125 MG AT 7 AM, 62.5 MG AT 4 PM
     Dates: start: 20120611
  4. MODOPAR [Suspect]
     Dosage: 125 MG AT 8 AM, 62.5 MG AT 4 PM
     Dates: start: 20120702
  5. ARTANE [Suspect]
     Dosage: 2 MG, ONCE DAILY AT 12:00
     Dates: start: 20120727
  6. ARTANE [Suspect]
     Indication: PARKINSON'S DISEASE
     Dosage: 2 MG, DAILY
     Dates: end: 20120406
  7. PRAMIPEXOLE DIHYDROCHLORIDE [Concomitant]
     Dosage: 0.7 MG, TID
     Dates: start: 20120406
  8. PANTOPRAZOLE [Concomitant]
     Dosage: 20 MG, QD
  9. AZILECT [Suspect]
     Indication: PARKINSON'S DISEASE
     Dosage: 1 DF, DAILY
     Dates: end: 20120406
  10. STALEVO 100 [Suspect]
     Indication: PARKINSON'S DISEASE
     Dosage: 1 DF, FOUR TIMES DAILY
     Dates: start: 19950101
  11. STALEVO 100 [Suspect]
     Dosage: 75 MG AT 8 AM, 12:00, 4 PM AND 8 PM
     Dates: start: 20120611, end: 20120702
  12. ARTANE [Suspect]
     Dosage: 2 MG ONE TABLET
     Dates: start: 20120702
  13. MODOPAR [Suspect]
     Indication: PARKINSON'S DISEASE
     Dosage: 62.5 MG, QID
     Dates: start: 19950101
  14. PRAMIPEXOLE DIHYDROCHLORIDE [Concomitant]
     Dosage: 0.7 MG, TID
  15. PRAMIPEXOLE DIHYDROCHLORIDE [Concomitant]
     Dosage: 1.05 MG, IN THE MORNING
     Dates: start: 20120702
  16. AMANTADINE HCL [Concomitant]
     Indication: PARKINSON'S DISEASE
     Dosage: 100 MG, ONCE DAILY IN THE MORNING
     Dates: start: 20120702
  17. PRAMIPEXOLE DIHYDROCHLORIDE [Concomitant]
     Dosage: 0.26 MG

REACTIONS (5)
  - PSYCHOMOTOR HYPERACTIVITY [None]
  - DYSKINESIA [None]
  - BINGE EATING [None]
  - AGITATION [None]
  - HYPERSEXUALITY [None]
